APPROVED DRUG PRODUCT: ADENOSINE
Active Ingredient: ADENOSINE
Strength: 3MG/ML
Dosage Form/Route: INJECTABLE;INJECTION
Application: A090220 | Product #001
Applicant: WOCKHARDT LTD
Approved: Jul 20, 2009 | RLD: No | RS: No | Type: DISCN